FAERS Safety Report 17491682 (Version 1)
Quarter: 2020Q1

REPORT INFORMATION
  Report Type: Spontaneous
  Country: US (occurrence: US)
  Receive Date: 20200303
  Receipt Date: 20200303
  Transmission Date: 20200409
  Serious: No
  Sender: FDA-Public Use
  Company Number: US-SHIRE-US202008054

PATIENT
  Age: 70 Year
  Sex: Male

DRUGS (1)
  1. GAMMAGARD LIQUID [Suspect]
     Active Substance: HUMAN IMMUNOGLOBULIN G
     Indication: PLASMA CELL MYELOMA
     Dosage: 40 GRAM
     Route: 065
     Dates: start: 20200213

REACTIONS (4)
  - Infusion related reaction [Unknown]
  - Tremor [Unknown]
  - Intentional product use issue [Unknown]
  - Chills [Unknown]

NARRATIVE: CASE EVENT DATE: 20200221
